FAERS Safety Report 19116257 (Version 1)
Quarter: 2021Q2

REPORT INFORMATION
  Report Type: Other
  Country: IT (occurrence: IT)
  Receive Date: 20210409
  Receipt Date: 20210409
  Transmission Date: 20210717
  Serious: Yes (Life-Threatening)
  Sender: FDA-Public Use
  Company Number: IT-VALIDUS PHARMACEUTICALS LLC-IT-2021VAL000489

PATIENT
  Age: 81 Year
  Sex: Female

DRUGS (5)
  1. KARVEA [Suspect]
     Active Substance: IRBESARTAN
     Indication: ESSENTIAL HYPERTENSION
     Dosage: 300 MG, QD
     Route: 048
     Dates: start: 20060731, end: 20071012
  2. LASIX [Suspect]
     Active Substance: FUROSEMIDE
     Indication: ESSENTIAL HYPERTENSION
     Dosage: 25 MG, QD
     Route: 048
     Dates: start: 20060930, end: 20071012
  3. ATENOLOL AND CHLORTHALIDONE [Suspect]
     Active Substance: ATENOLOL\CHLORTHALIDONE
     Indication: ESSENTIAL HYPERTENSION
     Dosage: 125 MG, QD
     Route: 048
     Dates: start: 20060930, end: 20071012
  4. VOLTAREN [Concomitant]
     Active Substance: DICLOFENAC SODIUM
     Indication: PRODUCT USED FOR UNKNOWN INDICATION
     Dosage: UNK
  5. NORVASC [Concomitant]
     Active Substance: AMLODIPINE BESYLATE
     Indication: PRODUCT USED FOR UNKNOWN INDICATION
     Dosage: UNK

REACTIONS (4)
  - Drug interaction [Recovering/Resolving]
  - Acute kidney injury [Recovering/Resolving]
  - Drug interaction [Not Recovered/Not Resolved]
  - Hypovolaemic shock [Not Recovered/Not Resolved]

NARRATIVE: CASE EVENT DATE: 20071010
